FAERS Safety Report 5026948-5 (Version None)
Quarter: 2006Q2

REPORT INFORMATION
  Report Type: 
  Country: None (occurrence: None)
  Receive Date: 20060609
  Receipt Date: 20060526
  Transmission Date: 20061013
  Serious: Yes (Other)
  Sender: FDA-Public Use
  Company Number: US017659

PATIENT
  Age: 50 Year
  Sex: Female

DRUGS (2)
  1. ALERTEC [Suspect]
     Indication: NARCOLEPSY
     Dosage: 200 MG QD ORAL
     Route: 048
  2. ZOLOFT [Concomitant]

REACTIONS (2)
  - FACIAL PALSY [None]
  - INFLUENZA LIKE ILLNESS [None]
